FAERS Safety Report 4534804-1 (Version None)
Quarter: 2004Q4

REPORT INFORMATION
  Report Type: 
  Country: None (occurrence: None)
  Receive Date: 20041222
  Receipt Date: 20040318
  Transmission Date: 20050328
  Serious: Yes (Disabling)
  Sender: FDA-Public Use
  Company Number: US-BRISTOL-MYERS SQUIBB COMPANY-12536645

PATIENT
  Sex: Male

DRUGS (1)
  1. PRAVACHOL [Suspect]

REACTIONS (1)
  - MUSCLE CRAMP [None]
